FAERS Safety Report 25281004 (Version 1)
Quarter: 2025Q2

REPORT INFORMATION
  Report Type: Spontaneous
  Country: US (occurrence: US)
  Receive Date: 20250508
  Receipt Date: 20250508
  Transmission Date: 20250717
  Serious: Yes (Other)
  Sender: ABBVIE
  Company Number: US-ABBVIE-6267605

PATIENT
  Sex: Female

DRUGS (1)
  1. REFRESH PLUS [Suspect]
     Active Substance: CARBOXYMETHYLCELLULOSE SODIUM
     Indication: Dry eye
     Route: 047

REACTIONS (11)
  - Cataract [Unknown]
  - Multiple use of single-use product [Unknown]
  - Pain in extremity [Unknown]
  - Weight decreased [Unknown]
  - Retinal vein occlusion [Unknown]
  - Eye pain [Unknown]
  - Intraocular pressure increased [Unknown]
  - Fall [Unknown]
  - Back pain [Unknown]
  - Sciatica [Unknown]
  - Retinal vein thrombosis [Unknown]

NARRATIVE: CASE EVENT DATE: 20250101
